FAERS Safety Report 9062280 (Version 2)
Quarter: 2013Q1

REPORT INFORMATION
  Report Type: Spontaneous
  Country: US (occurrence: None)
  Receive Date: 20130122
  Receipt Date: 20130305
  Transmission Date: 20140127
  Serious: Yes (Death, Other)
  Sender: FDA-Public Use
  Company Number: MPS1-1000911

PATIENT
  Age: 1 Year
  Sex: Male
  Weight: 11.5 kg

DRUGS (22)
  1. ALDURAZYME [Suspect]
     Indication: MUCOPOLYSACCHARIDOSIS I
     Dosage: 1X/W
     Route: 042
     Dates: start: 201205, end: 201209
  2. ANTITHYMOCYTE IMMUNOGLOBULIN (ANTITHYMOCYTE IMMUNOGLOBULIN) [Concomitant]
  3. FLUDARABINE (FLUDARABINE PHOSPHATE) [Concomitant]
  4. CORD BLOOD TRANSPLANT [Concomitant]
  5. BUSULFAN (BUSULAFAN) [Concomitant]
  6. SIMILAC (CARBOHYDRATES NOS, FATS NOS, LINOLEIC ACID, MINERALS NOS, PROTEIN, VITAMINS NOS) [Concomitant]
  7. SILDENAFIL (SILDENAFIL) [Concomitant]
  8. CYCLOSPORINE (CICLOSPORIN) [Concomitant]
  9. METHYLPREDNISOLONE (METHYLPREDNISOLONE) [Concomitant]
  10. VORICONAZOLE (VORICONAZOLE) [Concomitant]
  11. HEPARIN (HEPARIN SODIUM) [Concomitant]
  12. BACTRIM [Suspect]
  13. PENTAMIDINE (PENTAMIDINE) [Concomitant]
  14. DILANTIN (PHENYTOIN SODIUM) [Concomitant]
  15. IMMUNOGLOBULIN (IMMUNOGLOBULIN) [Concomitant]
  16. OXYGEN (OXYGEN) [Concomitant]
  17. VANCOMYCIN (VANCOMYCIN) [Concomitant]
  18. AMPICILLIN (AMPICILLIN) [Concomitant]
  19. MEROPENEM (MEROPENEM) [Concomitant]
  20. STREPTOMYCIN (STREPTOMYCIN) [Concomitant]
  21. FUROSEMIDE (FUROSEMIDE) [Concomitant]
  22. FOSCARNET (FOSCARNET) [Concomitant]

REACTIONS (11)
  - Shunt infection [None]
  - Transplant failure [None]
  - Enterococcal sepsis [None]
  - Respiratory failure [None]
  - Peritonitis bacterial [None]
  - Enterococcal infection [None]
  - CNS ventriculitis [None]
  - Cytomegalovirus viraemia [None]
  - Human herpesvirus 6 infection [None]
  - Transfusion reaction [None]
  - Viraemia [None]
